FAERS Safety Report 10024275 (Version 1)
Quarter: 2014Q1

REPORT INFORMATION
  Report Type: Spontaneous
  Country: US (occurrence: US)
  Receive Date: 20140320
  Receipt Date: 20140320
  Transmission Date: 20141002
  Serious: Yes (Other)
  Sender: FDA-Public Use
  Company Number: US-PFIZER INC-2014080014

PATIENT
  Age: 58 Year
  Sex: Female
  Weight: 47.17 kg

DRUGS (3)
  1. CELEBREX [Suspect]
     Indication: PAIN
     Dosage: 200 MG, 1X/DAY
  2. NORVASC [Concomitant]
     Indication: HYPERTENSION
     Dosage: 10 MG, 1X/DAY
  3. SYNTHROID [Concomitant]
     Indication: THYROID DISORDER
     Dosage: 100 UG, 1X/DAY

REACTIONS (2)
  - Intervertebral disc protrusion [Unknown]
  - Spinal column stenosis [Unknown]
